FAERS Safety Report 7452872-4 (Version None)
Quarter: 2011Q2

REPORT INFORMATION
  Report Type: 
  Country: None (occurrence: None)
  Receive Date: 20110502
  Receipt Date: 20101013
  Transmission Date: 20111010
  Serious: No
  Sender: FDA-Public Use
  Company Number: US-ASTRAZENECA-2010SE48279

PATIENT
  Age: 49 Year
  Sex: Male

DRUGS (8)
  1. NEXIUM [Suspect]
     Indication: GASTROOESOPHAGEAL REFLUX DISEASE
     Route: 048
  2. GLIPIZIDE [Concomitant]
  3. ATENOLOL [Concomitant]
  4. METFORMIN HCL [Concomitant]
  5. LISINOPRIL [Concomitant]
  6. LAMOTRIGINE [Concomitant]
  7. LORAZEPAM [Concomitant]
  8. SIMVASTATIN [Concomitant]

REACTIONS (2)
  - DRUG DOSE OMISSION [None]
  - GASTROOESOPHAGEAL REFLUX DISEASE [None]
